FAERS Safety Report 18992068 (Version 2)
Quarter: 2021Q2

REPORT INFORMATION
  Report Type: Report from Study
  Country: CN (occurrence: CN)
  Receive Date: 20210310
  Receipt Date: 20210503
  Transmission Date: 20210717
  Serious: No
  Sender: FDA-Public Use
  Company Number: CN-TAKEDA-2021TUS014999

PATIENT

DRUGS (1)
  1. IXAZOMIB [Suspect]
     Active Substance: IXAZOMIB
     Indication: PLASMA CELL MYELOMA RECURRENT
     Dosage: UNK
     Route: 065

REACTIONS (4)
  - Ataxia [Unknown]
  - Muscle atrophy [Unknown]
  - Gait disturbance [Unknown]
  - Depression [Unknown]
